FAERS Safety Report 5426454-X (Version None)
Quarter: 2007Q3

REPORT INFORMATION
  Report Type: 
  Country: None (occurrence: None)
  Receive Date: 20070827
  Receipt Date: 20070815
  Transmission Date: 20080115
  Serious: Yes (Other)
  Sender: FDA-Public Use
  Company Number: US-PFIZER INC-2007067980

PATIENT
  Sex: Female

DRUGS (2)
  1. BEXTRA [Suspect]
     Indication: PAIN
  2. BEXTRA [Suspect]
     Indication: HYPOAESTHESIA

REACTIONS (1)
  - CEREBROVASCULAR ACCIDENT [None]
